FAERS Safety Report 6460805-2 (Version None)
Quarter: 2009Q4

REPORT INFORMATION
  Report Type: 
  Country: None (occurrence: None)
  Receive Date: 20091130
  Receipt Date: 20091123
  Transmission Date: 20100525
  Serious: Yes (Other)
  Sender: FDA-Public Use
  Company Number: GB-PFIZER INC-2009277488

PATIENT
  Age: 58 Year
  Sex: Female
  Weight: 53.9 kg

DRUGS (2)
  1. ISTIN [Suspect]
     Indication: HYPERTENSION
     Dosage: 5 MG, 1X/DAY
     Route: 048
  2. IRBESARTAN [Concomitant]
     Indication: HYPERTENSION

REACTIONS (2)
  - BLOOD FOLATE DECREASED [None]
  - DIARRHOEA [None]
